FAERS Safety Report 5696459-2 (Version None)
Quarter: 2008Q2

REPORT INFORMATION
  Report Type: 
  Country: None (occurrence: None)
  Receive Date: 20080408
  Receipt Date: 20080310
  Transmission Date: 20081010
  Serious: No
  Sender: FDA-Public Use
  Company Number: US-BOEHRINGER INGELHEIM GMBH, GERMANY-2008-BP-01998BP

PATIENT
  Age: 62 Year
  Sex: Male

DRUGS (10)
  1. FLOMAX [Suspect]
     Indication: BENIGN PROSTATIC HYPERPLASIA
     Route: 048
     Dates: start: 20080205
  2. FLOMAX [Suspect]
     Indication: MICTURITION DISORDER
  3. BENAZEPRIL HYDROCHLORIDE [Concomitant]
     Indication: HYPERTENSION
  4. NORVASC [Concomitant]
     Indication: HYPERTENSION
  5. FUROSEMIDE [Concomitant]
     Indication: HYPERTENSION
     Route: 048
  6. TOPROL-XL [Concomitant]
     Indication: HYPERTENSION
  7. CLONIDINE HCL [Concomitant]
     Indication: HYPERTENSION
  8. ASPIRIN [Concomitant]
  9. FE [Concomitant]
  10. M.V.I. [Concomitant]

REACTIONS (1)
  - FEELING COLD [None]
